FAERS Safety Report 15516119 (Version 1)
Quarter: 2018Q4

REPORT INFORMATION
  Report Type: Spontaneous
  Country: US (occurrence: US)
  Receive Date: 20181017
  Receipt Date: 20181017
  Transmission Date: 20190205
  Serious: No
  Sender: FDA-Public Use
  Company Number: US-PFIZER INC-2018417038

PATIENT

DRUGS (3)
  1. XALKORI [Suspect]
     Active Substance: CRIZOTINIB
     Dosage: UNK
     Route: 048
  2. ALECTINIB. [Suspect]
     Active Substance: ALECTINIB
     Dosage: UNK
     Route: 048
  3. CERITINIB [Suspect]
     Active Substance: CERITINIB
     Dosage: UNK
     Route: 048

REACTIONS (1)
  - Neoplasm progression [Unknown]
